FAERS Safety Report 22300387 (Version 1)
Quarter: 2023Q2

REPORT INFORMATION
  Report Type: Spontaneous
  Country: US (occurrence: US)
  Receive Date: 20230509
  Receipt Date: 20230509
  Transmission Date: 20230722
  Serious: No
  Sender: FDA-Public Use
  Company Number: US-BRISTOL-MYERS SQUIBB COMPANY-2023-065726

PATIENT
  Age: 48 Year
  Sex: Female

DRUGS (2)
  1. POMALYST [Suspect]
     Active Substance: POMALIDOMIDE
     Indication: Plasma cell myeloma
     Dosage: FREQ: 21 DAYS ON 7 DAYS OFF
     Route: 048
     Dates: start: 20230501
  2. DARZALEX [Concomitant]
     Active Substance: DARATUMUMAB
     Indication: Product used for unknown indication

REACTIONS (5)
  - Arthralgia [Unknown]
  - Erythema [Unknown]
  - Swelling face [Unknown]
  - Dyspnoea [Unknown]
  - Pharyngeal swelling [Unknown]
